FAERS Safety Report 5999754-2 (Version None)
Quarter: 2008Q4

REPORT INFORMATION
  Report Type: 
  Country: None (occurrence: None)
  Receive Date: 20081211
  Receipt Date: 20081211
  Transmission Date: 20090506
  Serious: No
  Sender: FDA-Public Use
  Company Number: None

PATIENT
  Sex: Female
  Weight: 88.905 kg

DRUGS (2)
  1. TILIA FE [Suspect]
     Indication: CONTRACEPTION
     Dates: start: 20081111
  2. ESTROSTEP FE [Suspect]

REACTIONS (3)
  - DYSPEPSIA [None]
  - EMOTIONAL DISORDER [None]
  - PRODUCT QUALITY ISSUE [None]
